FAERS Safety Report 5469200-6 (Version None)
Quarter: 2007Q3

REPORT INFORMATION
  Report Type: 
  Country: None (occurrence: None)
  Receive Date: 20070927
  Receipt Date: 20070918
  Transmission Date: 20080115
  Serious: Yes (Other)
  Sender: FDA-Public Use
  Company Number: US-JNJFOC-20070904072

PATIENT
  Sex: Male
  Weight: 26.76 kg

DRUGS (3)
  1. CONCERTA [Suspect]
     Route: 048
  2. CONCERTA [Suspect]
     Indication: ATTENTION DEFICIT/HYPERACTIVITY DISORDER
     Route: 048
  3. STRATTERA [Concomitant]
     Indication: SLEEP DISORDER
     Route: 048

REACTIONS (5)
  - AGGRESSION [None]
  - CRYING [None]
  - DEPRESSION [None]
  - HOSTILITY [None]
  - INSOMNIA [None]
